FAERS Safety Report 15127776 (Version 1)
Quarter: 2018Q3

REPORT INFORMATION
  Report Type: Report from Study
  Country: IL (occurrence: IL)
  Receive Date: 20180710
  Receipt Date: 20180710
  Transmission Date: 20181010
  Serious: Yes (Hospitalization)
  Sender: FDA-Public Use
  Company Number: IL-SHIRE-IL201823880

PATIENT

DRUGS (1)
  1. VPRIV [Suspect]
     Active Substance: VELAGLUCERASE ALFA
     Indication: GAUCHER^S DISEASE
     Dosage: 1200/1600 , 1X/2WKS, A TOTAL OF 7 VIALS PER MONTH
     Dates: start: 20130210

REACTIONS (2)
  - Monocytosis [Unknown]
  - Leukocytosis [Unknown]
